FAERS Safety Report 6900012-X (Version None)
Quarter: 2010Q3

REPORT INFORMATION
  Report Type: 
  Country: None (occurrence: None)
  Receive Date: 20100708
  Receipt Date: 20090908
  Transmission Date: 20110219
  Serious: Yes (Death)
  Sender: FDA-Public Use
  Company Number: 2009266916

PATIENT

DRUGS (1)
  1. CHANTIX [Suspect]
     Dosage: ORAL
     Dates: start: 20070601

REACTIONS (1)
  - COMPLETED SUICIDE [None]
